FAERS Safety Report 7971250-2 (Version None)
Quarter: 2011Q4

REPORT INFORMATION
  Report Type: 
  Country: None (occurrence: None)
  Receive Date: 20111212
  Receipt Date: 20101115
  Transmission Date: 20120403
  Serious: Yes (Other)
  Sender: FDA-Public Use
  Company Number: US-BRISTOL-MYERS SQUIBB COMPANY-15313281

PATIENT
  Age: 56 Year
  Sex: Female

DRUGS (10)
  1. ERGOCALCIFEROL W/VITAMIN A [Concomitant]
  2. ACIPHEX [Concomitant]
  3. ZOLOFT [Concomitant]
  4. IXEMPRA KIT [Suspect]
     Indication: BREAST CANCER METASTATIC
     Dosage: 40 MG/M2
     Route: 042
     Dates: start: 20100923
  5. ZOMETA [Suspect]
     Dates: start: 20100916
  6. AVASTIN [Suspect]
     Dates: start: 20100916
  7. DECADRON [Concomitant]
     Indication: PREMEDICATION
  8. LIPITOR [Concomitant]
  9. ZANTAC [Concomitant]
     Indication: PREMEDICATION
  10. BENADRYL [Concomitant]
     Indication: PREMEDICATION

REACTIONS (1)
  - INFUSION RELATED REACTION [None]
